FAERS Safety Report 12841422 (Version 4)
Quarter: 2017Q1

REPORT INFORMATION
  Report Type: Spontaneous
  Country: TR (occurrence: TR)
  Receive Date: 20161012
  Receipt Date: 20170207
  Transmission Date: 20170428
  Serious: Yes (Other)
  Sender: FDA-Public Use
  Company Number: TR-PFIZER INC-2016475777

PATIENT
  Age: 55 Year
  Sex: Male

DRUGS (1)
  1. LYRICA [Suspect]
     Active Substance: PREGABALIN
     Dosage: 300 MG, UNK (TAKING 5-6 PILLS)

REACTIONS (5)
  - Retinal haemorrhage [Unknown]
  - Suicide attempt [Unknown]
  - Retinal infarction [Unknown]
  - Intentional overdose [Unknown]
  - Blindness [Unknown]
